FAERS Safety Report 5483714-4 (Version None)
Quarter: 2007Q4

REPORT INFORMATION
  Report Type: 
  Country: None (occurrence: None)
  Receive Date: 20071010
  Receipt Date: 20070924
  Transmission Date: 20080405
  Serious: Yes (Hospitalization)
  Sender: FDA-Public Use
  Company Number: 2007BI014988

PATIENT
  Age: 25 Year
  Sex: Female
  Weight: 63.5036 kg

DRUGS (5)
  1. AVONEX [Suspect]
     Indication: MULTIPLE SCLEROSIS
     Dosage: 30 MG;QW;IM
     Route: 030
     Dates: start: 20070505, end: 20070801
  2. GABAPENTIN [Concomitant]
  3. IBUPROFEN [Concomitant]
  4. BACLOFEN [Concomitant]
  5. BISACODYL [Concomitant]

REACTIONS (10)
  - ANGIOPATHY [None]
  - BLINDNESS [None]
  - BLOOD SODIUM DECREASED [None]
  - BODY TEMPERATURE DECREASED [None]
  - DEHYDRATION [None]
  - MULTIPLE SCLEROSIS RELAPSE [None]
  - MYELITIS [None]
  - NEUROMYELITIS OPTICA [None]
  - OPTIC NEURITIS [None]
  - POSTPARTUM DISORDER [None]
